FAERS Safety Report 25982058 (Version 2)
Quarter: 2025Q4

REPORT INFORMATION
  Report Type: Spontaneous
  Country: EU (occurrence: EU)
  Receive Date: 20251031
  Receipt Date: 20251113
  Transmission Date: 20260117
  Serious: Yes (Other)
  Sender: AUROBINDO
  Company Number: EU-AMGEN-ESPSP2025204718

PATIENT
  Age: 81 Year
  Sex: Female

DRUGS (5)
  1. CINACALCET [Suspect]
     Active Substance: CINACALCET
     Indication: Hyperparathyroidism primary
     Dosage: UP TO 150 MG, QD
     Route: 065
  2. CINACALCET [Suspect]
     Active Substance: CINACALCET
     Dosage: 30 MILLIGRAM, ONCE A DAY
     Route: 065
  3. ACENOCOUMAROL [Concomitant]
     Active Substance: ACENOCOUMAROL
     Indication: Product used for unknown indication
     Dosage: UNK
     Route: 065
  4. VITAMIN K [Concomitant]
     Active Substance: PHYTONADIONE
     Indication: Product used for unknown indication
     Dosage: UNK
     Route: 065
  5. PROTHROMBIN [Concomitant]
     Active Substance: PROTHROMBIN
     Indication: Product used for unknown indication
     Dosage: UNK
     Route: 065

REACTIONS (2)
  - Spinal fracture [Unknown]
  - Osteoporosis [Unknown]
